FAERS Safety Report 7979465-4 (Version None)
Quarter: 2011Q4

REPORT INFORMATION
  Report Type: 
  Country: None (occurrence: None)
  Receive Date: 20111214
  Receipt Date: 20111206
  Transmission Date: 20120403
  Serious: Yes (Other)
  Sender: FDA-Public Use
  Company Number: PHEH2011US011025

PATIENT
  Sex: Female

DRUGS (3)
  1. EXJADE [Suspect]
     Dosage: 500 MG, QD
     Route: 048
  2. INSULIN [Concomitant]
     Dosage: 20 U/AM
  3. INSULIN [Concomitant]
     Dosage: 20 U/AM

REACTIONS (1)
  - BLOOD GLUCOSE FLUCTUATION [None]
